FAERS Safety Report 10469425 (Version 1)
Quarter: 2014Q3

REPORT INFORMATION
  Report Type: Spontaneous
  Country: US (occurrence: None)
  Receive Date: 20140903
  Receipt Date: 20140903
  Transmission Date: 20150326
  Serious: Yes (Hospitalization, Other)
  Sender: FDA-Public Use
  Company Number: 1421783

PATIENT
  Age: 81 Year
  Sex: Male
  Weight: 104 kg

DRUGS (5)
  1. CHLORAMBUCIL [Concomitant]
     Active Substance: CHLORAMBUCIL
  2. TYLENOL [Concomitant]
     Active Substance: ACETAMINOPHEN
  3. BENADRYL (UNITED STATES) (DIPHENHYDRAMINE HYDROCHLORIDE) [Concomitant]
  4. GAZYVA [Suspect]
     Active Substance: OBINUTUZUMAB
     Indication: CHRONIC LYMPHOCYTIC LEUKAEMIA
     Dosage: (NOT OTHERWISE SPECIFIED)
     Route: 042
     Dates: start: 20140619
  5. DECADRON [Concomitant]
     Active Substance: DEXAMETHASONE

REACTIONS (5)
  - Flushing [None]
  - Vomiting [None]
  - Infusion related reaction [None]
  - Feeling hot [None]
  - Nausea [None]
